FAERS Safety Report 9858544 (Version 2)
Quarter: 2014Q1

REPORT INFORMATION
  Report Type: Spontaneous
  Country: US (occurrence: US)
  Receive Date: 20140131
  Receipt Date: 20140324
  Transmission Date: 20141002
  Serious: Yes (Hospitalization)
  Sender: FDA-Public Use
  Company Number: US-SA-2014SA011086

PATIENT
  Age: 35 Year
  Sex: Male
  Weight: 145.5 kg

DRUGS (2)
  1. HECTOROL [Suspect]
     Indication: HYPERPARATHYROIDISM
     Route: 042
     Dates: start: 20140115, end: 20140115
  2. HEPARIN [Concomitant]
     Dosage: DOSE:18000 UNIT(S)
     Route: 042
     Dates: start: 20111223

REACTIONS (4)
  - Pruritus [Recovered/Resolved]
  - Chest discomfort [Recovering/Resolving]
  - Chest pain [Recovered/Resolved]
  - Dyspnoea [Recovered/Resolved]
